FAERS Safety Report 9157130 (Version 1)
Quarter: 2013Q1

REPORT INFORMATION
  Report Type: Spontaneous
  Country: US (occurrence: US)
  Receive Date: 20130312
  Receipt Date: 20130312
  Transmission Date: 20140127
  Serious: No
  Sender: FDA-Public Use
  Company Number: US-PFIZER INC-2013081984

PATIENT
  Age: 61 Year
  Sex: Male
  Weight: 82.54 kg

DRUGS (6)
  1. CELEBREX [Suspect]
     Indication: NECK PAIN
     Dosage: 200MG DAILY
     Dates: start: 20130305
  2. CELEBREX [Suspect]
     Indication: ARTHRALGIA
  3. LIPITOR [Concomitant]
     Indication: BLOOD CHOLESTEROL INCREASED
     Dosage: 20MG DAILY
  4. ATENOLOL [Concomitant]
     Indication: HYPERTENSION
     Dosage: 100 MG, 2X/DAY
  5. AMLODIPINE BESILATE [Concomitant]
     Indication: HYPERTENSION
     Dosage: 5 MG, 2X/DAY
  6. METFORMIN [Concomitant]
     Indication: DIABETES MELLITUS
     Dosage: 2.5/500 MG TWO TIMES A DAY

REACTIONS (1)
  - Drug ineffective [Unknown]
